FAERS Safety Report 5575981-3 (Version None)
Quarter: 2007Q4

REPORT INFORMATION
  Report Type: 
  Country: None (occurrence: None)
  Receive Date: 20071228
  Receipt Date: 20071219
  Transmission Date: 20080405
  Serious: Yes (Other)
  Sender: FDA-Public Use
  Company Number: PHBS2007NL21144

PATIENT
  Sex: Male

DRUGS (2)
  1. DIOVAN [Suspect]
     Indication: HYPERTENSION
     Dosage: 160 MG, QD
     Dates: start: 20071101, end: 20071218
  2. CHLORTHALIDONE [Concomitant]

REACTIONS (7)
  - BACK PAIN [None]
  - FEELING ABNORMAL [None]
  - HEADACHE [None]
  - HIGH DENSITY LIPOPROTEIN DECREASED [None]
  - NECK PAIN [None]
  - PAIN IN EXTREMITY [None]
  - VISUAL DISTURBANCE [None]
